FAERS Safety Report 20333035 (Version 6)
Quarter: 2024Q2

REPORT INFORMATION
  Report Type: Report from Study
  Country: US (occurrence: US)
  Receive Date: 20220113
  Receipt Date: 20240524
  Transmission Date: 20240716
  Serious: Yes (Other)
  Sender: FDA-Public Use
  Company Number: US-TAKEDA-US201813522

PATIENT
  Age: 64 Year
  Sex: Male
  Weight: 64 kg

DRUGS (22)
  1. TEDUGLUTIDE [Suspect]
     Active Substance: TEDUGLUTIDE
     Indication: Short-bowel syndrome
     Dosage: 1.75 MILLIGRAM, QD
     Route: 058
  2. TEDUGLUTIDE [Suspect]
     Active Substance: TEDUGLUTIDE
     Indication: Short-bowel syndrome
     Dosage: 1.75 MILLIGRAM, QD
     Route: 058
  3. TEDUGLUTIDE [Suspect]
     Active Substance: TEDUGLUTIDE
     Indication: Short-bowel syndrome
     Dosage: 1.75 MILLIGRAM, QD
     Route: 058
  4. TEDUGLUTIDE [Suspect]
     Active Substance: TEDUGLUTIDE
     Indication: Short-bowel syndrome
     Dosage: 1.75 MILLIGRAM, QD
     Route: 058
  5. TEDUGLUTIDE [Suspect]
     Active Substance: TEDUGLUTIDE
     Dosage: 1.75 MILLIGRAM, QD
     Route: 058
  6. TEDUGLUTIDE [Suspect]
     Active Substance: TEDUGLUTIDE
     Dosage: 1.75 MILLIGRAM, QD
     Route: 058
  7. TEDUGLUTIDE [Suspect]
     Active Substance: TEDUGLUTIDE
     Dosage: 1.75 MILLIGRAM, QD
     Route: 058
  8. TEDUGLUTIDE [Suspect]
     Active Substance: TEDUGLUTIDE
     Dosage: 1.75 MILLIGRAM, QD
     Route: 058
  9. FISH OIL [Concomitant]
     Active Substance: FISH OIL
     Dosage: 1000 MILLIGRAM
     Route: 065
  10. MAGNESIUM [Concomitant]
     Active Substance: MAGNESIUM
     Dosage: 400 MILLIGRAM
     Route: 065
  11. LOMOTIL [Concomitant]
     Active Substance: ATROPINE SULFATE\DIPHENOXYLATE HYDROCHLORIDE
     Dosage: UNK
     Route: 065
  12. BEANO [Concomitant]
     Active Substance: ASPERGILLUS NIGER .ALPHA.-GALACTOSIDASE
     Dosage: 300 INTERNATIONAL UNIT
     Route: 065
  13. LEVOTHYROXINE [Concomitant]
     Active Substance: LEVOTHYROXINE\LEVOTHYROXINE SODIUM
     Dosage: 112 MICROGRAM
     Route: 065
  14. CLONAZEPAM [Concomitant]
     Active Substance: CLONAZEPAM
     Dosage: 1 MILLIGRAM
     Route: 065
  15. GABAPENTIN [Concomitant]
     Active Substance: GABAPENTIN
     Dosage: 100 MILLIGRAM
     Route: 065
  16. PREDNISONE [Concomitant]
     Active Substance: PREDNISONE
     Dosage: 5 MILLIGRAM
     Route: 065
  17. SODIUM BICARBONATE [Concomitant]
     Active Substance: SODIUM BICARBONATE
     Dosage: 650 MILLIGRAM
     Route: 065
  18. CELLCEPT [Concomitant]
     Active Substance: MYCOPHENOLATE MOFETIL
     Dosage: 250 MILLIGRAM
     Route: 065
  19. TACROLIMUS [Concomitant]
     Active Substance: TACROLIMUS
     Dosage: 1 MILLIGRAM
     Route: 065
  20. ELIQUIS [Concomitant]
     Active Substance: APIXABAN
     Dosage: 5 MILLIGRAM
     Route: 065
  21. VITAMIN D3 [Concomitant]
     Active Substance: CHOLECALCIFEROL
     Dosage: 10 MICROGRAM
     Route: 065
  22. CHONDROITIN SULFATE A\GLUCOSAMINE [Concomitant]
     Active Substance: CHONDROITIN SULFATE A\GLUCOSAMINE
     Dosage: UNK
     Route: 065

REACTIONS (11)
  - Pulmonary thrombosis [Unknown]
  - Pneumonia [Unknown]
  - COVID-19 [Recovered/Resolved]
  - Weight increased [Unknown]
  - Illness [Unknown]
  - Feeding disorder [Unknown]
  - Weight abnormal [Unknown]
  - Insurance issue [Unknown]
  - Injection site pain [Unknown]
  - Product dose omission issue [Unknown]
  - Inappropriate schedule of product administration [Unknown]

NARRATIVE: CASE EVENT DATE: 20231126
